FAERS Safety Report 15363196 (Version 2)
Quarter: 2018Q4

REPORT INFORMATION
  Report Type: Report from Study
  Country: None (occurrence: DE)
  Receive Date: 20180907
  Receipt Date: 20181004
  Transmission Date: 20190204
  Serious: Yes (Hospitalization)
  Sender: FDA-Public Use
  Company Number: DE-BIOVITRUM-2018BV000606

PATIENT
  Age: 11 Year
  Sex: Male
  Weight: 31 kg

DRUGS (1)
  1. ALPROLIX [Suspect]
     Active Substance: EFTRENONACOG ALFA
     Indication: FACTOR IX DEFICIENCY
     Route: 065
     Dates: start: 20161117

REACTIONS (3)
  - Device occlusion [Recovered/Resolved]
  - Upper limb fracture [Unknown]
  - Traumatic haemothorax [Recovered/Resolved]

NARRATIVE: CASE EVENT DATE: 20170803
